FAERS Safety Report 8809318 (Version 1)
Quarter: 2012Q4

REPORT INFORMATION
  Report Type: Report from Study
  Country: JP (occurrence: JP)
  Receive Date: 20120926
  Receipt Date: 20120926
  Transmission Date: 20130627
  Serious: Yes (Death)
  Sender: FDA-Public Use
  Company Number: JP-PFIZER INC-2012233840

PATIENT
  Age: 76 Year
  Sex: Female
  Weight: 54.3 kg

DRUGS (2)
  1. TEMSIROLIMUS [Suspect]
     Indication: METASTATIC RENAL CELL CARCINOMA
     Dosage: 25 mg, weekly
     Route: 042
     Dates: start: 20110805, end: 20120514
  2. CHLOR-TRIMETON [Concomitant]
     Indication: PROPHYLAXIS
     Dosage: 1 ml once a day on every temsirolimus administration date
     Route: 042
     Dates: start: 20110805

REACTIONS (2)
  - Disease progression [Fatal]
  - Metastatic renal cell carcinoma [Fatal]
